FAERS Safety Report 20720769 (Version 1)
Quarter: 2022Q2

REPORT INFORMATION
  Report Type: Spontaneous
  Country: US (occurrence: None)
  Receive Date: 20220415
  Receipt Date: 20220415
  Transmission Date: 20220720
  Serious: Yes (Death, Disabling)
  Sender: FDA-Public Use
  Company Number: None

PATIENT
  Age: 53 Year
  Sex: Male
  Weight: 94.05 kg

DRUGS (1)
  1. HIMS [Suspect]
     Active Substance: MINOXIDIL
     Indication: Alopecia
     Dates: start: 20210306, end: 20210326

REACTIONS (7)
  - Testicular atrophy [None]
  - Anxiety [None]
  - Pain [None]
  - Disability [None]
  - General physical health deterioration [None]
  - Completed suicide [None]
  - Weight decreased [None]

NARRATIVE: CASE EVENT DATE: 20210326
